FAERS Safety Report 18801860 (Version 1)
Quarter: 2021Q1

REPORT INFORMATION
  Report Type: Spontaneous
  Country: US (occurrence: US)
  Receive Date: 20210128
  Receipt Date: 20210128
  Transmission Date: 20210419
  Serious: Yes (Death, Other)
  Sender: FDA-Public Use
  Company Number: US-TEVA-2021-US-1871420

PATIENT
  Age: 26 Year
  Sex: Male

DRUGS (17)
  1. NUCYNTA [Suspect]
     Active Substance: TAPENTADOL HYDROCHLORIDE
     Dosage: 225 MILLIGRAM DAILY; 75 MG, 3X/DAY (EVERY 8 HOURS), AS NEEDED (90 MME/DAY)
     Route: 065
     Dates: start: 2017, end: 20170627
  2. HEROIN [Suspect]
     Active Substance: DIAMORPHINE
     Route: 065
  3. FENTANYL. [Suspect]
     Active Substance: FENTANYL
     Indication: PRODUCT USED FOR UNKNOWN INDICATION
     Route: 065
  4. TRAMADOL. [Suspect]
     Active Substance: TRAMADOL
     Indication: BACK PAIN
     Dosage: 50 MILLIGRAM DAILY;
  5. NUCYNTA [Suspect]
     Active Substance: TAPENTADOL HYDROCHLORIDE
     Dosage: 300 MILLIGRAM DAILY; 100 MG, 3X/DAY (EVERY 6?8 HOURS), AS NEEDED (90 MME/DAY)
     Route: 065
     Dates: start: 20170718, end: 20180708
  6. NUCYNTA [Suspect]
     Active Substance: TAPENTADOL HYDROCHLORIDE
     Dosage: UNK, 3X/DAY, ORAL
     Route: 048
  7. NUCYNTA [Suspect]
     Active Substance: TAPENTADOL HYDROCHLORIDE
     Dosage: 225 MILLIGRAM DAILY; 75 MG, 3X/DAY (EVERY 8 HOURS), AS NEEDED (90 MME/DAY)
     Route: 065
     Dates: start: 201611, end: 20170329
  8. NUCYNTA [Suspect]
     Active Substance: TAPENTADOL HYDROCHLORIDE
     Dosage: 300 MILLIGRAM DAILY; 100 MG, 3X/DAY (EVERY 8 HOURS), AS NEEDED (90 MME/DAY)
     Route: 065
     Dates: start: 20170628, end: 20170717
  9. TIZANIDINE. [Concomitant]
     Active Substance: TIZANIDINE
     Route: 065
  10. XYLAZINE [Suspect]
     Active Substance: XYLAZINE
     Route: 065
  11. DIAZEPAM. [Suspect]
     Active Substance: DIAZEPAM
     Route: 065
  12. NUCYNTA [Suspect]
     Active Substance: TAPENTADOL HYDROCHLORIDE
     Indication: BACK PAIN
     Dosage: 225 MILLIGRAM DAILY; 75 MG, 3X/DAY (CONTINUED)
     Route: 065
     Dates: start: 20160315, end: 201609
  13. NUCYNTA [Suspect]
     Active Substance: TAPENTADOL HYDROCHLORIDE
     Dosage: 300 MILLIGRAM DAILY; 100 MG, 3X/DAY (EVERY 8 HOURS),M AS NEEDED (90 MME/DAY)
     Route: 065
     Dates: start: 20170330, end: 2017
  14. TRAMADOL. [Suspect]
     Active Substance: TRAMADOL
     Indication: PAIN
     Dosage: MILD PAIN DRUG AND ALSO A LOW DOSE OPIOID PRESCRIPTION, USE DATES: UNKNOWN START DATE THROUGH 15?MAR
     Route: 065
  15. KETOROLAC [Concomitant]
     Active Substance: KETOROLAC TROMETHAMINE
     Route: 065
     Dates: start: 20170808
  16. NUCYNTA [Suspect]
     Active Substance: TAPENTADOL HYDROCHLORIDE
     Dosage: 400 MILLIGRAM DAILY; 100 MG, 4X/DAY
     Route: 065
     Dates: start: 20180709
  17. NUCYNTA [Suspect]
     Active Substance: TAPENTADOL HYDROCHLORIDE
     Dosage: AS NEEDED
     Route: 065

REACTIONS (23)
  - Intervertebral disc degeneration [Unknown]
  - Muscle tightness [Unknown]
  - Anxiety [Unknown]
  - Neuralgia [Unknown]
  - Abdominal pain upper [Not Recovered/Not Resolved]
  - Accidental overdose [Unknown]
  - Mental status changes [Unknown]
  - Emotional distress [Unknown]
  - Epilepsy [Unknown]
  - Drug dependence [Unknown]
  - Drug tolerance [Unknown]
  - Injury [Unknown]
  - Withdrawal syndrome [Not Recovered/Not Resolved]
  - Drug use disorder [Unknown]
  - Gastroenteritis [Unknown]
  - Therapeutic response decreased [Unknown]
  - Toxicity to various agents [Fatal]
  - Intervertebral disc protrusion [Unknown]
  - Weight decreased [Unknown]
  - Muscular weakness [Unknown]
  - Nausea [Not Recovered/Not Resolved]
  - Muscle spasms [Not Recovered/Not Resolved]
  - Diarrhoea [Not Recovered/Not Resolved]

NARRATIVE: CASE EVENT DATE: 2016
